FAERS Safety Report 18996554 (Version 1)
Quarter: 2021Q1

REPORT INFORMATION
  Report Type: Spontaneous
  Country: TR (occurrence: TR)
  Receive Date: 20210311
  Receipt Date: 20210311
  Transmission Date: 20210420
  Serious: Yes (Hospitalization)
  Sender: FDA-Public Use
  Company Number: NVSC2021TR050615

PATIENT
  Age: 44 Year
  Sex: Male

DRUGS (2)
  1. ILARIS [Suspect]
     Active Substance: CANAKINUMAB
     Indication: FAMILIAL MEDITERRANEAN FEVER
     Dosage: 150 MG, QMO
     Route: 065
     Dates: start: 20201218
  2. ILARIS [Suspect]
     Active Substance: CANAKINUMAB
     Indication: FAMILIAL AMYLOIDOSIS

REACTIONS (5)
  - Product use in unapproved indication [Unknown]
  - Product supply issue [Unknown]
  - Familial mediterranean fever [Unknown]
  - Condition aggravated [Unknown]
  - Familial amyloidosis [Unknown]

NARRATIVE: CASE EVENT DATE: 20201218
